FAERS Safety Report 16475667 (Version 1)
Quarter: 2019Q2

REPORT INFORMATION
  Report Type: Spontaneous
  Country: GB (occurrence: GB)
  Receive Date: 20190625
  Receipt Date: 20190625
  Transmission Date: 20190711
  Serious: Yes (Other)
  Sender: FDA-Public Use
  Company Number: GB-TEVA-2019-GB-1067166

PATIENT
  Age: 35 Year
  Sex: Female
  Weight: 76 kg

DRUGS (19)
  1. CLARITHROMYCIN. [Concomitant]
     Active Substance: CLARITHROMYCIN
     Dosage: FOR 7 DAYS
     Dates: start: 20190514
  2. ACIDEX [Concomitant]
     Active Substance: CALCIUM CARBONATE\SODIUM ALGINATE\SODIUM BICARBONATE
     Dosage: TAKE 10-20MLS AFTER MEALS AND AT BEDTIME
     Dates: start: 20190222, end: 20190306
  3. THIAMINE. [Concomitant]
     Active Substance: THIAMINE
     Dosage: 1DOSAGFORM FOR EVERY 1 DAYS
     Dates: start: 20190414
  4. NAPROXEN. [Concomitant]
     Active Substance: NAPROXEN
     Dosage: TWICE A DAY
     Dates: start: 20190429, end: 20190513
  5. AMITRIPTYLINE HYDROCHLORIDE. [Concomitant]
     Active Substance: AMITRIPTYLINE HYDROCHLORIDE
     Dosage: 1 DOSAGE FORM FOR 1 DAY NIGHT
     Dates: start: 20180925
  6. CEFALEXIN [Concomitant]
     Active Substance: CEPHALEXIN
     Dosage: 4 DOSAGE FORM FOR EVERY 1 DAYS
     Dates: start: 20190513
  7. DIAZEPAM. [Concomitant]
     Active Substance: DIAZEPAM
     Dosage: 3DOSAGE FORM FOR EVERY 1 DAYS
     Dates: start: 20190221, end: 20190224
  8. TRIMETHOPRIM. [Concomitant]
     Active Substance: TRIMETHOPRIM
     Dosage: 2DOSAGEOFRM FOR EVERY 1 DAYS 7 DAYS
     Dates: start: 20190326, end: 20190402
  9. SIRDUPLA [Concomitant]
     Active Substance: FLUTICASONE PROPIONATE\SALMETEROL XINAFOATE
     Dosage: 4DOSAGE FORM FOR EVERY 1 DAYS
     Route: 055
     Dates: start: 20181105
  10. PROCHLORPERAZINE. [Concomitant]
     Active Substance: PROCHLORPERAZINE
     Dosage: USE TWICE DAILY
     Dates: start: 20190328, end: 20190404
  11. SERTRALINE [Concomitant]
     Active Substance: SERTRALINE HYDROCHLORIDE
     Dosage: 1 DOSAGE FORM FOR EVERY 1 DAYS
     Dates: start: 20190326, end: 20190423
  12. GABAPENTIN. [Concomitant]
     Active Substance: GABAPENTIN
     Dosage: 3 DOSAGE FORM FOR 1 DAYS
     Dates: start: 20180925
  13. TRIMETHOPRIM. [Suspect]
     Active Substance: TRIMETHOPRIM
     Dosage: 200 MILLIGRAM
     Dates: start: 20190514
  14. MIRTAZAPINE. [Concomitant]
     Active Substance: MIRTAZAPINE
     Dosage: 1 DOSAGE FORM FOR EVERY 1 DAYSBEDTIME
     Dates: start: 20180925
  15. DOMPERIDONE [Concomitant]
     Active Substance: DOMPERIDONE
     Indication: NAUSEA
     Dosage: THREE TIMES A DAY
     Dates: start: 20190222, end: 20190322
  16. LANSOPRAZOLE. [Concomitant]
     Active Substance: LANSOPRAZOLE
     Dosage: 1 DOSAGE FORM FOR EVERY 1 DAY
     Dates: start: 20180925
  17. CYCLIZINE [Concomitant]
     Active Substance: CYCLIZINE
     Dosage: UP TO THREE TIMES A DAY
     Dates: start: 20190307, end: 20190317
  18. SALBUTAMOL [Concomitant]
     Active Substance: ALBUTEROL
     Dosage: 2DOSAGEFORM
     Route: 055
     Dates: start: 20181105
  19. ERYTHROMYCIN. [Concomitant]
     Active Substance: ERYTHROMYCIN
     Dosage: 4DOSAGE FORM FOR EVERY 1 DAYS
     Dates: start: 20190429, end: 20190506

REACTIONS (1)
  - Hallucination [Recovered/Resolved]

NARRATIVE: CASE EVENT DATE: 20190514
